FAERS Safety Report 5602523-6 (Version None)
Quarter: 2008Q1

REPORT INFORMATION
  Report Type: 
  Country: None (occurrence: None)
  Receive Date: 20080125
  Receipt Date: 20080123
  Transmission Date: 20080703
  Serious: Yes (Other)
  Sender: FDA-Public Use
  Company Number: B0501797A

PATIENT
  Age: 69 Year

DRUGS (4)
  1. CARVEDILOL [Suspect]
     Indication: LEFT VENTRICULAR DYSFUNCTION
     Dosage: 3.125MG TWICE PER DAY
     Route: 048
     Dates: start: 20070405, end: 20071123
  2. SIMVASTATIN [Concomitant]
     Dates: start: 20070308
  3. RAMIPRIL [Concomitant]
     Dates: start: 20060427
  4. ASPIRIN [Concomitant]
     Dates: start: 20031123

REACTIONS (2)
  - ABNORMAL DREAMS [None]
  - HALLUCINATION [None]
